FAERS Safety Report 9463933 (Version 2)
Quarter: 2013Q4

REPORT INFORMATION
  Report Type: Spontaneous
  Country: BR (occurrence: BR)
  Receive Date: 20130819
  Receipt Date: 20131004
  Transmission Date: 20140711
  Serious: Yes (Hospitalization, Other)
  Sender: FDA-Public Use
  Company Number: BR-NOVOPROD-385285

PATIENT
  Sex: Male
  Weight: 79.85 kg

DRUGS (10)
  1. VICTOZA [Suspect]
     Indication: TYPE 2 DIABETES MELLITUS
     Dosage: 1.2 MG, QD
     Route: 058
     Dates: start: 20110927, end: 20130607
  2. NOVORAPID FLEXPEN [Concomitant]
     Indication: TYPE 2 DIABETES MELLITUS
     Dosage: 8 IU, QD AT DINNER
     Route: 058
     Dates: start: 2005
  3. LANTUS [Concomitant]
     Indication: TYPE 2 DIABETES MELLITUS
     Dosage: 26 IU, QD AT NIGHT
     Route: 058
  4. METFORMIN [Concomitant]
     Indication: TYPE 2 DIABETES MELLITUS
     Dosage: UNK
  5. PROLOPA [Concomitant]
     Dosage: UNK
  6. ASPIRINA PREVENT [Concomitant]
     Dosage: UNK
  7. NORVASC [Concomitant]
     Dosage: UNK, 5 MG
  8. NEBILET [Concomitant]
     Dosage: UNK, 5 MG
  9. CIPROL [Concomitant]
     Dosage: UNK, 0.5 MG
  10. CLOPIDOGREL [Concomitant]
     Dosage: UNK

REACTIONS (5)
  - Back pain [Recovered/Resolved]
  - Hypotension [Recovered/Resolved]
  - Atrial fibrillation [Recovered/Resolved]
  - Renal failure acute [Recovered/Resolved]
  - Pancreatitis [Recovered/Resolved]
